FAERS Safety Report 9206573 (Version 1)
Quarter: 2013Q2

REPORT INFORMATION
  Report Type: Spontaneous
  Country: US (occurrence: US)
  Receive Date: 20130403
  Receipt Date: 20130403
  Transmission Date: 20140414
  Serious: Yes (Other)
  Sender: FDA-Public Use
  Company Number: US-PFIZER INC-2013105716

PATIENT
  Age: 42 Year
  Sex: Male
  Weight: 81.63 kg

DRUGS (1)
  1. CHANTIX [Suspect]
     Indication: SMOKING CESSATION THERAPY
     Dosage: UNK, 2X/DAY
     Route: 048
     Dates: start: 20130220, end: 20130331

REACTIONS (5)
  - Disorientation [Recovering/Resolving]
  - Confusional state [Recovering/Resolving]
  - Fall [Unknown]
  - Malaise [Recovering/Resolving]
  - Dizziness [Recovering/Resolving]
